FAERS Safety Report 21950735 (Version 1)
Quarter: 2023Q1

REPORT INFORMATION
  Report Type: Spontaneous
  Country: JP (occurrence: None)
  Receive Date: 20230203
  Receipt Date: 20230203
  Transmission Date: 20230417
  Serious: Yes (Hospitalization)
  Sender: FDA-Public Use
  Company Number: 2023A018626

PATIENT
  Age: 91 Year
  Sex: Male
  Weight: 70 kg

DRUGS (11)
  1. BREZTRI [Suspect]
     Active Substance: BUDESONIDE\FORMOTEROL\GLYCOPYRROLATE
     Indication: Chronic obstructive pulmonary disease
     Route: 055
     Dates: start: 20221025, end: 202211
  2. SILODOSIN [Suspect]
     Active Substance: SILODOSIN
     Indication: Benign prostatic hyperplasia
     Route: 048
     Dates: start: 201910
  3. EPLERENONE [Suspect]
     Active Substance: EPLERENONE
     Indication: Cardiac failure
     Route: 048
     Dates: start: 202104
  4. ASPIRIN [Suspect]
     Active Substance: ASPIRIN
     Indication: Aortic valve incompetence
     Route: 048
     Dates: start: 201703
  5. ASPIRIN [Suspect]
     Active Substance: ASPIRIN
     Indication: Cardiac failure
     Route: 048
     Dates: start: 201703
  6. DUTASTERIDE [Suspect]
     Active Substance: DUTASTERIDE
     Indication: Benign prostatic hyperplasia
     Route: 048
     Dates: start: 201910
  7. LABETALOL HYDROCHLORIDE [Suspect]
     Active Substance: LABETALOL HYDROCHLORIDE
     Indication: Aortic valve incompetence
     Route: 048
     Dates: start: 201703
  8. LABETALOL HYDROCHLORIDE [Suspect]
     Active Substance: LABETALOL HYDROCHLORIDE
     Indication: Cardiac failure
     Route: 048
     Dates: start: 201703
  9. TORSEMIDE [Suspect]
     Active Substance: TORSEMIDE
     Indication: Aortic valve incompetence
     Route: 048
     Dates: start: 201703
  10. TORSEMIDE [Suspect]
     Active Substance: TORSEMIDE
     Indication: Cardiac failure
     Route: 048
     Dates: start: 201703
  11. ENALAPRIL [Suspect]
     Active Substance: ENALAPRIL
     Indication: Chronic obstructive pulmonary disease
     Route: 048
     Dates: start: 202104

REACTIONS (2)
  - Haematuria [Unknown]
  - Urinary retention [Unknown]

NARRATIVE: CASE EVENT DATE: 20221101
